FAERS Safety Report 20941908 (Version 1)
Quarter: 2022Q2

REPORT INFORMATION
  Report Type: Spontaneous
  Country: IN (occurrence: IN)
  Receive Date: 20220610
  Receipt Date: 20220610
  Transmission Date: 20220721
  Serious: Yes (Hospitalization)
  Sender: FDA-Public Use
  Company Number: IN-STRIDES ARCOLAB LIMITED-2022SP006727

PATIENT
  Age: 7 Year

DRUGS (2)
  1. TACROLIMUS [Suspect]
     Active Substance: TACROLIMUS
     Indication: Prophylaxis against graft versus host disease
     Dosage: UNK
     Route: 065
  2. TACROLIMUS [Suspect]
     Active Substance: TACROLIMUS
     Indication: Allogenic stem cell transplantation

REACTIONS (5)
  - Cytokine release syndrome [Recovered/Resolved]
  - COVID-19 [Unknown]
  - Posterior reversible encephalopathy syndrome [Unknown]
  - Cytopenia [Unknown]
  - Off label use [Unknown]
